FAERS Safety Report 19206379 (Version 1)
Quarter: 2021Q2

REPORT INFORMATION
  Report Type: Spontaneous
  Country: US (occurrence: US)
  Receive Date: 20210503
  Receipt Date: 20210503
  Transmission Date: 20210717
  Serious: Yes (Life-Threatening)
  Sender: FDA-Public Use
  Company Number: None

PATIENT
  Age: 74 Year
  Sex: Female
  Weight: 89.5 kg

DRUGS (16)
  1. CEFAZOLIN 2G [Concomitant]
     Dates: start: 20210430, end: 20210430
  2. SUGAMMADEX [Suspect]
     Active Substance: SUGAMMADEX
     Indication: NEUROMUSCULAR BLOCKADE REVERSAL
     Dosage: ?          OTHER FREQUENCY:ONCE;?
     Route: 040
     Dates: start: 20210430, end: 20210430
  3. VASOPRESSIN 2 UNITS [Concomitant]
     Dates: start: 20210430, end: 20210430
  4. ROCURONIUM 90MG [Concomitant]
     Dates: start: 20210430, end: 20210430
  5. FENTANYL 200MCG [Concomitant]
     Dates: start: 20210430, end: 20210430
  6. EPINEPHRINE 0.8MG [Concomitant]
     Dates: start: 20210430, end: 20210430
  7. DIPHENHYDRAMINE 50MG [Concomitant]
     Active Substance: DIPHENHYDRAMINE
     Dates: start: 20210430, end: 20210430
  8. LACTATED RINGERS SOLUTION [Concomitant]
     Active Substance: CALCIUM CHLORIDE\POTASSIUM CHLORIDE\SODIUM CHLORIDE\SODIUM LACTATE
     Dates: start: 20210430, end: 20210430
  9. TRANEXAMIC ACID 2000MG [Concomitant]
     Dates: start: 20210430, end: 20210430
  10. LABETALOL 2.5MG [Concomitant]
     Dates: start: 20210430, end: 20210430
  11. MIDAZOLAM 4MG [Concomitant]
     Dates: start: 20210430, end: 20210430
  12. ONDANSETRON 4MG [Concomitant]
     Active Substance: ONDANSETRON
     Dates: start: 20210430, end: 20210430
  13. DEXMEDETOMIDINE 34.93MCG [Concomitant]
     Dates: start: 20210430, end: 20210430
  14. NORMAL SALINE [Concomitant]
     Active Substance: SODIUM CHLORIDE
     Dates: start: 20210430, end: 20210430
  15. PROPOFOL 100MG [Concomitant]
     Dates: start: 20210430, end: 20210430
  16. FAMOTIDINE 20MG [Concomitant]
     Active Substance: FAMOTIDINE
     Dates: start: 20210430, end: 20210430

REACTIONS (2)
  - Hypotension [None]
  - Hypersensitivity [None]

NARRATIVE: CASE EVENT DATE: 20210430
